FAERS Safety Report 18090739 (Version 1)
Quarter: 2020Q3

REPORT INFORMATION
  Report Type: Spontaneous
  Country: US (occurrence: US)
  Receive Date: 20200730
  Receipt Date: 20200730
  Transmission Date: 20201103
  Serious: Yes (Other)
  Sender: FDA-Public Use
  Company Number: US-ASTRAZENECA-2020SE93803

PATIENT
  Age: 54 Year
  Sex: Male

DRUGS (3)
  1. PULMICORT RESPULES [Suspect]
     Active Substance: BUDESONIDE
     Dosage: THREE TIMES A DAY SINCE 20 YEARS AGO.
     Route: 055
  2. XOPENEX [Concomitant]
     Active Substance: LEVALBUTEROL HYDROCHLORIDE
     Dosage: 0.63 NEBULIZED FOR THE PAST 24 YEAS
  3. ALBUTEROL. [Concomitant]
     Active Substance: ALBUTEROL

REACTIONS (9)
  - Temporal lobe epilepsy [Unknown]
  - Illness [Recovering/Resolving]
  - Vomiting [Recovered/Resolved]
  - Dyspnoea [Recovered/Resolved]
  - Muscle disorder [Not Recovered/Not Resolved]
  - Pulmonary oedema [Unknown]
  - Intentional self-injury [Unknown]
  - Retching [Recovered/Resolved]
  - Weight decreased [Not Recovered/Not Resolved]
